FAERS Safety Report 6538793-X (Version None)
Quarter: 2010Q1

REPORT INFORMATION
  Report Type: 
  Country: None (occurrence: None)
  Receive Date: 20100115
  Receipt Date: 20100106
  Transmission Date: 20100710
  Serious: Yes (Hospitalization)
  Sender: FDA-Public Use
  Company Number: JP-JNJFOC-20070304515

PATIENT
  Age: 53 Year
  Sex: Male

DRUGS (6)
  1. RISPERDAL [Suspect]
     Indication: SCHIZOPHRENIA
     Route: 048
  2. RISPERDAL [Suspect]
     Route: 048
  3. RISPERDAL [Suspect]
     Route: 048
  4. RISPERDAL [Suspect]
     Route: 048
  5. ROHYPNOL [Concomitant]
     Route: 065
  6. BIPERIDEN AND PREPARATIONS [Concomitant]
     Route: 065

REACTIONS (4)
  - HYPOGLYCAEMIA [None]
  - PALPITATIONS [None]
  - SOMNOLENCE [None]
  - TREMOR [None]
